FAERS Safety Report 4397587-4 (Version None)
Quarter: 2004Q3

REPORT INFORMATION
  Report Type: 
  Country: None (occurrence: None)
  Receive Date: 20040712
  Receipt Date: 20040630
  Transmission Date: 20050211
  Serious: Yes (Death)
  Sender: FDA-Public Use
  Company Number: 2004-07-0216

PATIENT

DRUGS (1)
  1. PEG-INTRON [Suspect]
     Dosage: 100 MCG

REACTIONS (1)
  - DEATH [None]
